FAERS Safety Report 24591095 (Version 1)
Quarter: 2024Q4

REPORT INFORMATION
  Report Type: Report from Study
  Country: US (occurrence: US)
  Receive Date: 20241107
  Receipt Date: 20241107
  Transmission Date: 20250115
  Serious: Yes (Other)
  Sender: ABBVIE
  Company Number: US-ABBVIE-5620175

PATIENT
  Age: 60 Year
  Sex: Female

DRUGS (5)
  1. RINVOQ [Suspect]
     Active Substance: UPADACITINIB
     Indication: Dermatitis atopic
     Dosage: FORM STRENGTH: 15 MILLIGRAM
     Route: 048
     Dates: start: 20240129, end: 202407
  2. RINVOQ [Suspect]
     Active Substance: UPADACITINIB
     Indication: Dermatitis atopic
     Dosage: FORM STRENGTH: 15 MILLIGRAM
     Route: 048
     Dates: start: 202307
  3. RINVOQ [Suspect]
     Active Substance: UPADACITINIB
     Indication: Dermatitis atopic
     Dosage: TWO 15 MG TABLETS, ON 30 MG DOSING FOR A FEW DAYS (AROUND JUL 23, 24, 25 EXACT DATES UNKNOWN. LAS...
     Route: 048
     Dates: start: 202407
  4. RINVOQ [Suspect]
     Active Substance: UPADACITINIB
     Indication: Dermatitis atopic
     Dosage: FORM STRENGTH: 15 MILLIGRAM
     Route: 048
  5. RINVOQ [Suspect]
     Active Substance: UPADACITINIB
     Indication: Dermatitis atopic
     Dosage: FORM STRENGTH: 15 MILLIGRAM
     Route: 048

REACTIONS (11)
  - Oesophageal disorder [Unknown]
  - Dermatitis atopic [Not Recovered/Not Resolved]
  - Rash papular [Unknown]
  - Eye swelling [Unknown]
  - Drug ineffective [Unknown]
  - Blood cholesterol increased [Unknown]
  - Hepatic enzyme increased [Unknown]
  - Sleep disorder [Unknown]
  - Papule [Unknown]
  - Rash vesicular [Not Recovered/Not Resolved]
  - Rash pruritic [Not Recovered/Not Resolved]

NARRATIVE: CASE EVENT DATE: 20240101
